FAERS Safety Report 4675559-X (Version None)
Quarter: 2005Q2

REPORT INFORMATION
  Report Type: 
  Country: None (occurrence: None)
  Receive Date: 20050527
  Receipt Date: 20050412
  Transmission Date: 20051028
  Serious: No
  Sender: FDA-Public Use
  Company Number: US-BRISTOL-MYERS SQUIBB COMPANY-12930632

PATIENT
  Age: 82 Year
  Sex: Female
  Weight: 75 kg

DRUGS (7)
  1. ABILIFY [Suspect]
     Indication: TARDIVE DYSKINESIA
     Dates: start: 20050216, end: 20050402
  2. ABILIFY [Suspect]
     Indication: ESSENTIAL TREMOR
     Dates: start: 20050216, end: 20050402
  3. PRAVACHOL [Concomitant]
  4. ALTACE [Concomitant]
  5. GLYBURIDE [Concomitant]
  6. OXYTROL [Concomitant]
     Route: 062
  7. IBUPROFEN [Concomitant]
     Dates: start: 20050328, end: 20050410

REACTIONS (9)
  - AMNESIA [None]
  - BACK PAIN [None]
  - CONFUSIONAL STATE [None]
  - FAECAL INCONTINENCE [None]
  - OEDEMA PERIPHERAL [None]
  - PAIN IN EXTREMITY [None]
  - PARKINSONISM [None]
  - URINARY INCONTINENCE [None]
  - WEIGHT INCREASED [None]
